FAERS Safety Report 9428254 (Version 1)
Quarter: 2013Q3

REPORT INFORMATION
  Report Type: Spontaneous
  Country: US (occurrence: US)
  Receive Date: 20130730
  Receipt Date: 20130730
  Transmission Date: 20140515
  Serious: No
  Sender: FDA-Public Use
  Company Number: US-GLAXOSMITHKLINE-A0999172A

PATIENT
  Age: 23 Year
  Sex: Male

DRUGS (3)
  1. ZANTAC [Suspect]
     Indication: GASTROOESOPHAGEAL REFLUX DISEASE
     Dosage: 1TSP TWICE PER DAY
     Route: 048
     Dates: start: 2002
  2. KEPPRA [Concomitant]
  3. CLONAZEPAM [Concomitant]

REACTIONS (8)
  - Personality change [Unknown]
  - Insomnia [Unknown]
  - Initial insomnia [Unknown]
  - Ill-defined disorder [Unknown]
  - Ill-defined disorder [Unknown]
  - Feeling abnormal [Unknown]
  - Eructation [Unknown]
  - Product quality issue [Unknown]
